FAERS Safety Report 19218799 (Version 2)
Quarter: 2021Q2

REPORT INFORMATION
  Report Type: Report from Study
  Country: US (occurrence: US)
  Receive Date: 20210505
  Receipt Date: 20210528
  Transmission Date: 20210717
  Serious: Yes (Death, Hospitalization, Other)
  Sender: FDA-Public Use
  Company Number: US-GLAXOSMITHKLINE-US2020AMR151678

PATIENT
  Age: 72 Year
  Sex: Female

DRUGS (4)
  1. NIRAPARIB [Suspect]
     Active Substance: NIRAPARIB
     Dosage: 100 MG, QD
     Route: 048
  2. NIRAPARIB [Suspect]
     Active Substance: NIRAPARIB
     Indication: OVARIAN CANCER
     Dosage: 200 MG, QD
     Route: 065
     Dates: start: 20200716, end: 20200818
  3. NIRAPARIB [Suspect]
     Active Substance: NIRAPARIB
     Dosage: 100 MG, QD
     Route: 065
     Dates: start: 20200922, end: 20201014
  4. NIRAPARIB [Suspect]
     Active Substance: NIRAPARIB
     Dosage: 100 MG, QD
     Dates: start: 20210303

REACTIONS (5)
  - Carbohydrate antigen 125 increased [Unknown]
  - Platelet count decreased [Unknown]
  - Off label use [Unknown]
  - Hospitalisation [Unknown]
  - Death [Fatal]

NARRATIVE: CASE EVENT DATE: 20210522
